FAERS Safety Report 12050695 (Version 1)
Quarter: 2016Q1

REPORT INFORMATION
  Report Type: Report from Study
  Country: US (occurrence: US)
  Receive Date: 20160208
  Receipt Date: 20160208
  Transmission Date: 20160526
  Serious: No
  Sender: FDA-Public Use
  Company Number: US-ABBVIE-15P-163-1394479-00

PATIENT
  Sex: Male

DRUGS (1)
  1. HUMIRA [Suspect]
     Active Substance: ADALIMUMAB
     Indication: PSORIATIC ARTHROPATHY
     Route: 065
     Dates: start: 201410, end: 201504

REACTIONS (5)
  - Psoriasis [Unknown]
  - Drug ineffective [Not Recovered/Not Resolved]
  - Alcoholism [Not Recovered/Not Resolved]
  - Rash generalised [Not Recovered/Not Resolved]
  - Skin mass [Not Recovered/Not Resolved]
